FAERS Safety Report 7533558-4 (Version None)
Quarter: 2011Q2

REPORT INFORMATION
  Report Type: 
  Country: None (occurrence: None)
  Receive Date: 20110608
  Receipt Date: 20060111
  Transmission Date: 20111010
  Serious: Yes (Other)
  Sender: FDA-Public Use
  Company Number: PHFR2005GB01663

PATIENT
  Sex: Male

DRUGS (3)
  1. CLOZAPINE [Suspect]
     Indication: SCHIZOPHRENIA
     Dosage: 400 MG, QD
     Route: 048
     Dates: start: 19970918
  2. ALLOPURINOL [Concomitant]
     Route: 065
  3. HYDROXYUREA [Concomitant]
     Indication: POLYCYTHAEMIA
     Dosage: UNK, UNK
     Route: 065
     Dates: start: 20041001

REACTIONS (3)
  - POLYCYTHAEMIA [None]
  - MEAN CELL VOLUME INCREASED [None]
  - RED BLOOD CELL COUNT DECREASED [None]
